FAERS Safety Report 10180618 (Version 2)
Quarter: 2014Q4

REPORT INFORMATION
  Report Type: Spontaneous
  Country: US (occurrence: US)
  Receive Date: 20140519
  Receipt Date: 20141006
  Transmission Date: 20150528
  Serious: No
  Sender: FDA-Public Use
  Company Number: US-AMGEN INC.-USASP2014019879

PATIENT
  Age: 76 Year
  Sex: Female

DRUGS (1)
  1. PROLIA [Suspect]
     Active Substance: DENOSUMAB
     Indication: OSTEOPOROSIS POSTMENOPAUSAL
     Dosage: UNK
     Route: 065
     Dates: start: 20140226

REACTIONS (12)
  - Back pain [Unknown]
  - Dry eye [Unknown]
  - Osteopenia [Unknown]
  - Weight increased [Unknown]
  - Cystitis [Recovered/Resolved]
  - Constipation [Unknown]
  - Groin pain [Unknown]
  - Arthralgia [Unknown]
  - Eyelid oedema [Unknown]
  - Rosacea [Unknown]
  - Myalgia [Unknown]
  - Pollakiuria [Unknown]

NARRATIVE: CASE EVENT DATE: 20140308
